FAERS Safety Report 4828094-X (Version None)
Quarter: 2005Q4

REPORT INFORMATION
  Report Type: 
  Country: None (occurrence: None)
  Receive Date: 20051110
  Receipt Date: 20051028
  Transmission Date: 20060501
  Serious: Yes (Other)
  Sender: FDA-Public Use
  Company Number: 2005144910

PATIENT
  Age: 47 Year
  Sex: Female

DRUGS (1)
  1. RELPAX [Suspect]
     Indication: MIGRAINE
     Dosage: (1 IN 1 M), ORAL
     Route: 048
     Dates: start: 20040101

REACTIONS (2)
  - EXTRAVASATION [None]
  - OEDEMA [None]
